FAERS Safety Report 5333693-5 (Version None)
Quarter: 2007Q2

REPORT INFORMATION
  Report Type: 
  Country: None (occurrence: None)
  Receive Date: 20070524
  Receipt Date: 20070521
  Transmission Date: 20071010
  Serious: Yes (Hospitalization)
  Sender: FDA-Public Use
  Company Number: B0461267A

PATIENT
  Age: 20 Year
  Sex: Male

DRUGS (4)
  1. RELENZA [Suspect]
     Indication: INFLUENZA
     Route: 055
     Dates: start: 20070224, end: 20070228
  2. DASEN [Concomitant]
     Route: 048
  3. CALONAL [Concomitant]
     Route: 065
  4. AZUNOL [Concomitant]
     Route: 002

REACTIONS (6)
  - LARYNGEAL OEDEMA [None]
  - LYMPHADENOPATHY [None]
  - ODYNOPHAGIA [None]
  - PERITONSILLAR ABSCESS [None]
  - PHARYNGEAL OEDEMA [None]
  - PYREXIA [None]
